FAERS Safety Report 16713462 (Version 1)
Quarter: 2019Q3

REPORT INFORMATION
  Report Type: Report from Study
  Country: None (occurrence: US)
  Receive Date: 20190819
  Receipt Date: 20190819
  Transmission Date: 20191004
  Serious: Yes (Hospitalization, Other)
  Sender: FDA-Public Use
  Company Number: US-ABBVIE-19K-163-2882462-00

PATIENT
  Age: 69 Year
  Sex: Male
  Weight: 46.54 kg

DRUGS (3)
  1. HUMIRA [Suspect]
     Active Substance: ADALIMUMAB
     Indication: CROHN^S DISEASE
     Route: 058
     Dates: start: 201709, end: 201901
  2. HUMIRA [Suspect]
     Active Substance: ADALIMUMAB
     Indication: CROHN^S DISEASE
     Route: 058
     Dates: start: 20190124, end: 20190724
  3. VITAMIN D [Concomitant]
     Active Substance: VITAMIN D NOS
     Indication: VITAMIN SUPPLEMENTATION

REACTIONS (7)
  - Explorative laparotomy [Unknown]
  - Haemoglobin decreased [Recovering/Resolving]
  - Large intestinal haemorrhage [Recovering/Resolving]
  - Colectomy [Unknown]
  - Crohn^s disease [Recovering/Resolving]
  - Volvulus [Recovering/Resolving]
  - Hypertension [Recovered/Resolved]

NARRATIVE: CASE EVENT DATE: 20190806
